FAERS Safety Report 18192750 (Version 5)
Quarter: 2021Q1

REPORT INFORMATION
  Report Type: Spontaneous
  Country: CO (occurrence: CO)
  Receive Date: 20200825
  Receipt Date: 20210329
  Transmission Date: 20210419
  Serious: No
  Sender: FDA-Public Use
  Company Number: CO-PFIZER INC-2020305821

PATIENT
  Age: 14 Year
  Sex: Male

DRUGS (2)
  1. GENOTROPIN [Suspect]
     Active Substance: SOMATROPIN
     Indication: SMALL FOR DATES BABY
  2. GENOTROPIN [Suspect]
     Active Substance: SOMATROPIN
     Indication: SHORT STATURE
     Dosage: 1.4 MG, DAILY
     Route: 058
     Dates: start: 20200413

REACTIONS (1)
  - Wrong technique in device usage process [Unknown]

NARRATIVE: CASE EVENT DATE: 20200413
